FAERS Safety Report 14918371 (Version 2)
Quarter: 2018Q2

REPORT INFORMATION
  Report Type: Spontaneous
  Country: MX (occurrence: MX)
  Receive Date: 20180521
  Receipt Date: 20180625
  Transmission Date: 20180711
  Serious: Yes (Death)
  Sender: FDA-Public Use
  Company Number: PHHY2018MX004136

PATIENT
  Sex: Male

DRUGS (1)
  1. GLIVEC [Suspect]
     Active Substance: IMATINIB MESYLATE
     Indication: CHRONIC MYELOID LEUKAEMIA
     Dosage: 400 MG, QD (EVERY 24 HOURS)
     Route: 065
     Dates: start: 20030325, end: 20171210

REACTIONS (4)
  - Graft versus host disease [Fatal]
  - Pneumonia [Fatal]
  - Septic shock [Fatal]
  - Immunosuppression [Fatal]
